FAERS Safety Report 6534314-6 (Version None)
Quarter: 2010Q1

REPORT INFORMATION
  Report Type: 
  Country: None (occurrence: None)
  Receive Date: 20100112
  Receipt Date: 20091228
  Transmission Date: 20100710
  Serious: Yes (Hospitalization)
  Sender: FDA-Public Use
  Company Number: DE-MYLANLABS-2010S1000062

PATIENT
  Age: 36 Year
  Sex: Female
  Weight: 57.7 kg

DRUGS (6)
  1. AZATHIOPRINE [Suspect]
     Indication: SYSTEMIC LUPUS ERYTHEMATOSUS
     Route: 048
     Dates: start: 20030401, end: 20091115
  2. AZATHIOPRINE [Interacting]
     Route: 048
     Dates: start: 20091129
  3. PREDNISOLONE [Interacting]
     Indication: SYSTEMIC LUPUS ERYTHEMATOSUS
     Route: 048
     Dates: start: 19950101
  4. AZITHROMYCIN [Concomitant]
     Indication: BRONCHOPNEUMONIA
     Dosage: 13.11. 250 MG, 14.11. 500 MG, 15.11. 2X 250 MG
     Route: 048
     Dates: start: 20091114, end: 20091115
  5. RAMIPRIL [Concomitant]
     Indication: HYPERTENSION
     Route: 048
     Dates: start: 20030101
  6. DOLOMO /00012701/ [Concomitant]
     Indication: PAIN
     Route: 048

REACTIONS (2)
  - BRONCHOPNEUMONIA [None]
  - DRUG INTERACTION [None]
